FAERS Safety Report 6058773-0 (Version None)
Quarter: 2009Q1

REPORT INFORMATION
  Report Type: 
  Country: None (occurrence: None)
  Receive Date: 20090128
  Receipt Date: 20090128
  Transmission Date: 20090719
  Serious: Yes (Death)
  Sender: FDA-Public Use
  Company Number: None

PATIENT
  Sex: Male
  Weight: 84.9 kg

DRUGS (6)
  1. CETUXIMAB 250 MG/M2 BRISTOL-MYERS SQUIBB [Suspect]
     Indication: GASTRIC CANCER
     Dosage: 250 MG/M2 WEEKLY IV DRIP
     Route: 041
     Dates: start: 20081105, end: 20081217
  2. ALLOPURINOL [Concomitant]
  3. LEVOTHYROXINE SODIUM [Concomitant]
  4. PERCOCET [Concomitant]
  5. AMBIEN [Concomitant]
  6. PRILOSEC [Concomitant]

REACTIONS (8)
  - ANAEMIA [None]
  - ANOREXIA [None]
  - DYSPNOEA [None]
  - FATIGUE [None]
  - MALIGNANT NEOPLASM PROGRESSION [None]
  - NAUSEA [None]
  - PAIN [None]
  - VOMITING [None]
